FAERS Safety Report 16834605 (Version 4)
Quarter: 2019Q4

REPORT INFORMATION
  Report Type: Spontaneous
  Country: CO (occurrence: CO)
  Receive Date: 20190920
  Receipt Date: 20191016
  Transmission Date: 20200122
  Serious: Yes (Death, Life-Threatening, Hospitalization, Other)
  Sender: FDA-Public Use
  Company Number: CO-UNITED THERAPEUTICS-UNT-2019-015810

PATIENT

DRUGS (13)
  1. FUROSEMIDA [FUROSEMIDE] [Concomitant]
     Active Substance: FUROSEMIDE
     Indication: CARDIAC DISORDER
     Dosage: 20 MG, Q12H
     Route: 048
     Dates: start: 201611, end: 20190913
  2. FUROSEMIDA [FUROSEMIDE] [Concomitant]
     Active Substance: FUROSEMIDE
     Dosage: 20 MG, Q12H
     Route: 042
     Dates: start: 20190913
  3. SPIRONOLACTONE. [Concomitant]
     Active Substance: SPIRONOLACTONE
     Indication: CARDIAC DISORDER
     Dosage: 25 MG, QD
     Route: 048
     Dates: start: 201903, end: 20190919
  4. SILDENAFIL. [Concomitant]
     Active Substance: SILDENAFIL
     Indication: PULMONARY HYPERTENSION
     Dosage: 25 MG, Q12H
     Route: 048
     Dates: start: 201611, end: 20190919
  5. CEFEPIME [Concomitant]
     Active Substance: CEFEPIME HYDROCHLORIDE
     Indication: ANTIBIOTIC THERAPY
     Dosage: 1 G, Q8H
     Route: 042
     Dates: start: 20190914
  6. VANCOMYCIN [Concomitant]
     Active Substance: VANCOMYCIN
     Indication: ANTIBIOTIC THERAPY
     Dosage: 1 G, Q12H
     Route: 042
     Dates: start: 20190914
  7. ENOXAPARIN [Concomitant]
     Active Substance: ENOXAPARIN
     Indication: ANTICOAGULANT THERAPY
     Dosage: 40 MG, QD
     Route: 058
     Dates: start: 20190914
  8. REMODULIN [Suspect]
     Active Substance: TREPROSTINIL
     Indication: CARDIAC DISORDER
  9. ENALAPRIL [Concomitant]
     Active Substance: ENALAPRIL
     Indication: CARDIAC DISORDER
     Dosage: 10 MG, QD
     Route: 048
     Dates: start: 201611, end: 20190919
  10. METOCLOPRAMIDE. [Concomitant]
     Active Substance: METOCLOPRAMIDE
     Indication: ANTIEMETIC SUPPORTIVE CARE
     Dosage: 10 MG, Q8H
     Route: 042
     Dates: start: 20190914
  11. BOSENTAN. [Concomitant]
     Active Substance: BOSENTAN
     Indication: PULMONARY HYPERTENSION
     Dosage: 125 MG, Q12H
     Route: 048
     Dates: start: 201611, end: 20190919
  12. REMODULIN [Suspect]
     Active Substance: TREPROSTINIL
     Indication: PULMONARY HYPERTENSION
     Dosage: 0.055 ?G/KG, CONTINUING
     Route: 058
     Dates: start: 20170315, end: 20190919
  13. HIDROMORFONA [Concomitant]
     Indication: ANALGESIC THERAPY
     Dosage: 0.3 G, Q8H
     Route: 042
     Dates: start: 20190914

REACTIONS (5)
  - Multiple organ dysfunction syndrome [Fatal]
  - Pericardial effusion [Unknown]
  - Condition aggravated [Fatal]
  - Cardio-respiratory arrest [Fatal]
  - Haemodynamic instability [Unknown]

NARRATIVE: CASE EVENT DATE: 201909
